FAERS Safety Report 7134171-3 (Version None)
Quarter: 2010Q4

REPORT INFORMATION
  Report Type: 
  Country: None (occurrence: None)
  Receive Date: 20101203
  Receipt Date: 20101123
  Transmission Date: 20110411
  Serious: Yes (Hospitalization)
  Sender: FDA-Public Use
  Company Number: PL-JNJFOC-20101107640

PATIENT
  Age: 14 Year
  Sex: Male

DRUGS (2)
  1. RISPOLEPT [Suspect]
     Indication: CONDUCT DISORDER
     Route: 048
  2. UNKNOWN MEDICATION [Suspect]
     Indication: ILL-DEFINED DISORDER
     Route: 065

REACTIONS (4)
  - CONDUCT DISORDER [None]
  - HALLUCINATION [None]
  - SEDATION [None]
  - WEIGHT INCREASED [None]
